FAERS Safety Report 13290683 (Version 2)
Quarter: 2017Q1

REPORT INFORMATION
  Report Type: Spontaneous
  Country: IT (occurrence: IT)
  Receive Date: 20170303
  Receipt Date: 20170310
  Transmission Date: 20170428
  Serious: Yes (Other)
  Sender: FDA-Public Use
  Company Number: IT-ROCHE-1901370

PATIENT
  Age: 55 Year
  Sex: Female

DRUGS (5)
  1. DEURSIL [Concomitant]
     Active Substance: URSODIOL
  2. DIBASE [Concomitant]
     Active Substance: CHOLECALCIFEROL
  3. LANSOPRAZOLE. [Concomitant]
     Active Substance: LANSOPRAZOLE
  4. MABTHERA [Suspect]
     Active Substance: RITUXIMAB
     Indication: RHEUMATOID ARTHRITIS
     Dosage: CYCLE IS ADMINISTERED EVERY 6 MONTHS
     Route: 042
     Dates: start: 20161106, end: 20161106
  5. MEDROL [Concomitant]
     Active Substance: METHYLPREDNISOLONE

REACTIONS (2)
  - Laryngospasm [Recovered/Resolved]
  - Ear pain [Recovered/Resolved]

NARRATIVE: CASE EVENT DATE: 20161106
